FAERS Safety Report 14506637 (Version 2)
Quarter: 2018Q1

REPORT INFORMATION
  Report Type: Report from Study
  Country: US (occurrence: US)
  Receive Date: 20180208
  Receipt Date: 20180313
  Transmission Date: 20180509
  Serious: Yes (Hospitalization, Other)
  Sender: FDA-Public Use
  Company Number: US-JNJFOC-20180204261

PATIENT
  Age: 49 Year
  Sex: Female

DRUGS (18)
  1. DILANTIN [Concomitant]
     Active Substance: PHENYTOIN
  2. OXYCODONE [Concomitant]
     Active Substance: OXYCODONE
     Route: 065
  3. ASPIRIN. [Concomitant]
     Active Substance: ASPIRIN
  4. TUMS [Concomitant]
     Active Substance: CALCIUM CARBONATE
  5. IMBRUVICA [Suspect]
     Active Substance: IBRUTINIB
     Indication: NON-HODGKIN^S LYMPHOMA
     Route: 048
     Dates: start: 20170412
  6. MULTIVITAMINS [Concomitant]
     Active Substance: VITAMINS
  7. DEXAMETHASONE. [Concomitant]
     Active Substance: DEXAMETHASONE
  8. ZOLOFT [Concomitant]
     Active Substance: SERTRALINE HYDROCHLORIDE
  9. CALCIUM CARBONATE. [Concomitant]
     Active Substance: CALCIUM CARBONATE
  10. VALTREX [Concomitant]
     Active Substance: VALACYCLOVIR HYDROCHLORIDE
  11. FOLIC ACID. [Concomitant]
     Active Substance: FOLIC ACID
  12. BIOTIN [Concomitant]
     Active Substance: BIOTIN
  13. ATARAX [Concomitant]
     Active Substance: HYDROXYZINE HYDROCHLORIDE
  14. PROCHLORPERAZINE EDISYLATE. [Concomitant]
     Active Substance: PROCHLORPERAZINE EDISYLATE
  15. IMBRUVICA [Suspect]
     Active Substance: IBRUTINIB
     Indication: NON-HODGKIN^S LYMPHOMA
     Route: 048
     Dates: start: 20170316
  16. KEPPRA [Concomitant]
     Active Substance: LEVETIRACETAM
  17. ATIVAN [Concomitant]
     Active Substance: LORAZEPAM
  18. MIRTAZAPINE. [Concomitant]
     Active Substance: MIRTAZAPINE

REACTIONS (4)
  - Seizure [Recovered/Resolved]
  - Motor dysfunction [Not Recovered/Not Resolved]
  - Neoplasm [Unknown]
  - Nerve compression [Unknown]

NARRATIVE: CASE EVENT DATE: 20180114
